FAERS Safety Report 26153203 (Version 1)
Quarter: 2025Q4

REPORT INFORMATION
  Report Type: Spontaneous
  Country: US (occurrence: US)
  Receive Date: 20251214
  Receipt Date: 20251214
  Transmission Date: 20260118
  Serious: Yes (Hospitalization)
  Sender: MERCK SHARP & DOHME LLC
  Company Number: US-009507513-2359015

PATIENT
  Age: 59 Year
  Sex: Male

DRUGS (1)
  1. DAPTOMYCIN [Suspect]
     Active Substance: DAPTOMYCIN
     Indication: Staphylococcal infection
     Route: 042

REACTIONS (3)
  - Eosinophilic pneumonia [Recovering/Resolving]
  - Rhabdomyolysis [Recovering/Resolving]
  - Product use in unapproved indication [Unknown]
